FAERS Safety Report 10382323 (Version 5)
Quarter: 2015Q3

REPORT INFORMATION
  Report Type: Spontaneous
  Country: US (occurrence: US)
  Receive Date: 20140813
  Receipt Date: 20150724
  Transmission Date: 20151125
  Serious: Yes (Death, Hospitalization, Other)
  Sender: FDA-Public Use
  Company Number: US-009507513-1408USA007557

PATIENT
  Sex: Male
  Weight: 90.25 kg

DRUGS (4)
  1. JANUVIA [Suspect]
     Active Substance: SITAGLIPTIN PHOSPHATE
     Indication: TYPE 1 DIABETES MELLITUS
     Dosage: 50 MG, QD
     Route: 048
     Dates: start: 20111207, end: 20120508
  2. VICTOZA [Suspect]
     Active Substance: LIRAGLUTIDE
     Indication: TYPE 1 DIABETES MELLITUS
     Dosage: 18 MG, QD
     Route: 048
     Dates: start: 20110802, end: 20111118
  3. JANUVIA [Suspect]
     Active Substance: SITAGLIPTIN PHOSPHATE
     Indication: TYPE 2 DIABETES MELLITUS
     Dosage: 100 MG, QD
     Route: 048
     Dates: start: 20111118
  4. VICTOZA [Suspect]
     Active Substance: LIRAGLUTIDE
     Indication: TYPE 2 DIABETES MELLITUS
     Dosage: 0.6 MG, QD
     Route: 058
     Dates: start: 20110802

REACTIONS (36)
  - Respiratory failure [Fatal]
  - Transaminases increased [Recovering/Resolving]
  - Muscle atrophy [Unknown]
  - Cholecystectomy [Unknown]
  - Bladder operation [Unknown]
  - Surgery [Unknown]
  - Urinary tract infection [Unknown]
  - Bile duct stenosis [Unknown]
  - Bile duct stone [Unknown]
  - Cholangitis acute [Unknown]
  - Bacteraemia [Unknown]
  - Bile duct stent insertion [Unknown]
  - Sepsis [Unknown]
  - Cholelithiasis [Recovered/Resolved]
  - Cholestasis [Unknown]
  - Atrial fibrillation [Unknown]
  - Cholecystitis [Unknown]
  - Bile duct stent insertion [Unknown]
  - Asthenia [Unknown]
  - Product use issue [Unknown]
  - Pancreatic carcinoma [Fatal]
  - Prostatic operation [Unknown]
  - Depression [Unknown]
  - Decreased appetite [Unknown]
  - Breath sounds abnormal [Unknown]
  - Nausea [Unknown]
  - Cholangitis [Unknown]
  - Diabetes mellitus inadequate control [Unknown]
  - Arrhythmia [Unknown]
  - Enterococcal infection [Unknown]
  - Bile duct stent removal [Unknown]
  - Fall [Unknown]
  - Prostate cancer [Unknown]
  - Urosepsis [Unknown]
  - Bile duct stent insertion [Unknown]
  - Laceration [Unknown]

NARRATIVE: CASE EVENT DATE: 201111
